FAERS Safety Report 9568510 (Version 1)
Quarter: 2013Q3

REPORT INFORMATION
  Report Type: Spontaneous
  Country: US (occurrence: US)
  Receive Date: 20130930
  Receipt Date: 20130930
  Transmission Date: 20140515
  Serious: No
  Sender: FDA-Public Use
  Company Number: US-AMGEN-USASP2013062095

PATIENT
  Age: 58 Year
  Sex: Female
  Weight: 58.96 kg

DRUGS (8)
  1. ENBREL [Suspect]
     Indication: PRODUCT USED FOR UNKNOWN INDICATION
     Dosage: 50 MG, ONCE A WEEK
     Route: 058
  2. PREDNISOL                          /00016201/ [Concomitant]
     Dosage: 1 %, UNK
     Route: 047
  3. BONIVA [Concomitant]
     Dosage: 150 MG, UNK
  4. LEVOTHYROXIN [Concomitant]
     Dosage: 200 MUG, UNK
  5. PROCARDIA                          /00340701/ [Concomitant]
     Dosage: 30 MG CR, UNK
  6. VITAMIN D                          /00107901/ [Concomitant]
     Dosage: 1000 UNIT, UNK
  7. AMOXICILLIN [Concomitant]
     Dosage: 250 MG, UNK
  8. TYLENOL 8 HOUR [Concomitant]
     Dosage: 650 MG, UNK

REACTIONS (3)
  - Neuralgia [Unknown]
  - Eye disorder [Unknown]
  - Herpes zoster [Unknown]
